FAERS Safety Report 20142472 (Version 1)
Quarter: 2021Q4

REPORT INFORMATION
  Report Type: Spontaneous
  Country: US (occurrence: US)
  Receive Date: 20211202
  Receipt Date: 20211202
  Transmission Date: 20220303
  Serious: Yes (Hospitalization)
  Sender: FDA-Public Use
  Company Number: US-BoehringerIngelheim-2021-BI-141480

PATIENT
  Age: 70 Year
  Sex: Female

DRUGS (3)
  1. TYVASO [Suspect]
     Active Substance: TREPROSTINIL
     Indication: Pulmonary arterial hypertension
     Dosage: INHALATION INHALATION GAS, 0.6 MG/ML
     Dates: start: 20210917
  2. TYVASO [Suspect]
     Active Substance: TREPROSTINIL
     Dosage: 18 ?G (3 BREATHS), FOUR TIMES A DAY (QID)
     Route: 055
     Dates: start: 2021
  3. OFEV [Suspect]
     Active Substance: NINTEDANIB
     Indication: Product used for unknown indication
     Dosage: UNKNOWN
     Dates: end: 2021

REACTIONS (2)
  - Hypervolaemia [Unknown]
  - Illness [Unknown]

NARRATIVE: CASE EVENT DATE: 20210101
